FAERS Safety Report 5720760-7 (Version None)
Quarter: 2008Q2

REPORT INFORMATION
  Report Type: 
  Country: None (occurrence: None)
  Receive Date: 20080429
  Receipt Date: 20080422
  Transmission Date: 20081010
  Serious: Yes (Congenital Anomaly, Other)
  Sender: FDA-Public Use
  Company Number: PHBS2008RU02787

PATIENT
  Age: 1 Day
  Sex: Female
  Weight: 2 kg

DRUGS (1)
  1. SANDIMMUNE [Suspect]
     Dosage: MOTHER: 200 MG/D
     Route: 064

REACTIONS (3)
  - CONGENITAL CYSTIC KIDNEY DISEASE [None]
  - DRUG EXPOSURE DURING PREGNANCY [None]
  - PREMATURE BABY [None]
